FAERS Safety Report 4660584-5 (Version None)
Quarter: 2005Q2

REPORT INFORMATION
  Report Type: 
  Country: None (occurrence: None)
  Receive Date: 20050512
  Receipt Date: 20050425
  Transmission Date: 20051028
  Serious: Yes (Life-Threatening)
  Sender: FDA-Public Use
  Company Number: 2005AP02550

PATIENT
  Age: 65 Year
  Sex: Male

DRUGS (3)
  1. IRESSA [Suspect]
     Indication: LUNG NEOPLASM MALIGNANT
     Route: 048
     Dates: start: 20050401, end: 20050425
  2. GASTER [Concomitant]
  3. PAXIL [Concomitant]
     Route: 048

REACTIONS (1)
  - LEUKOPENIA [None]
